FAERS Safety Report 15596022 (Version 2)
Quarter: 2018Q4

REPORT INFORMATION
  Report Type: Spontaneous
  Country: US (occurrence: US)
  Receive Date: 20181107
  Receipt Date: 20181211
  Transmission Date: 20190205
  Serious: No
  Sender: FDA-Public Use
  Company Number: US-PFIZER INC-2018452738

PATIENT
  Age: 58 Year
  Sex: Female

DRUGS (2)
  1. EUCRISA [Suspect]
     Active Substance: CRISABOROLE
     Indication: SEBORRHOEIC DERMATITIS
     Dosage: UNK UNK, 2X/DAY
     Dates: start: 201810
  2. EUCRISA [Suspect]
     Active Substance: CRISABOROLE
     Indication: RASH

REACTIONS (2)
  - Drug ineffective for unapproved indication [Unknown]
  - Product quality issue [Unknown]
